FAERS Safety Report 4564811-4 (Version None)
Quarter: 2005Q1

REPORT INFORMATION
  Report Type: 
  Country: None (occurrence: None)
  Receive Date: 20050128
  Receipt Date: 20030605
  Transmission Date: 20050727
  Serious: Yes (Death, Hospitalization, Other)
  Sender: FDA-Public Use
  Company Number: US-MERCK-0306USA00920

PATIENT
  Age: 54 Year
  Sex: Male
  Weight: 80 kg

DRUGS (3)
  1. VIOXX [Suspect]
     Indication: RHEUMATOID ARTHRITIS
     Route: 048
     Dates: start: 20000503, end: 20000614
  2. VIOXX [Suspect]
     Route: 048
     Dates: start: 20000614, end: 20010208
  3. VIOXX [Suspect]
     Route: 048
     Dates: start: 20010101

REACTIONS (43)
  - ADVERSE EVENT [None]
  - AFFECTIVE DISORDER [None]
  - ALOPECIA [None]
  - ANGINA PECTORIS [None]
  - BLOOD PRESSURE INCREASED [None]
  - BRONCHOPNEUMONIA [None]
  - BRONCHOSPASM [None]
  - BUNDLE BRANCH BLOCK RIGHT [None]
  - CHEST PAIN [None]
  - CHRONIC OBSTRUCTIVE PULMONARY DISEASE [None]
  - CONVULSION [None]
  - CORONARY ARTERY ATHEROSCLEROSIS [None]
  - CUSHING'S SYNDROME [None]
  - DEAFNESS [None]
  - DEATH [None]
  - DEPRESSION [None]
  - DIZZINESS [None]
  - DYSKINESIA [None]
  - EMPHYSEMA [None]
  - EPICONDYLITIS [None]
  - ERECTILE DYSFUNCTION [None]
  - FALL [None]
  - GASTROOESOPHAGEAL REFLUX DISEASE [None]
  - GENERALISED ANXIETY DISORDER [None]
  - HEAD INJURY [None]
  - HOT FLUSH [None]
  - HYPERLIPIDAEMIA [None]
  - HYPERSENSITIVITY [None]
  - HYPERTENSION [None]
  - HYPERVENTILATION [None]
  - INTERSTITIAL LUNG DISEASE [None]
  - IRRITABLE BOWEL SYNDROME [None]
  - MENTAL IMPAIRMENT [None]
  - MUSCLE TWITCHING [None]
  - MYOCARDIAL INFARCTION [None]
  - NAUSEA [None]
  - NODULE [None]
  - PHARYNGOLARYNGEAL PAIN [None]
  - PNEUMONIA [None]
  - SPINAL COLUMN STENOSIS [None]
  - SYNCOPE [None]
  - TUNNEL VISION [None]
  - VISUAL DISTURBANCE [None]
